FAERS Safety Report 5741655-9 (Version None)
Quarter: 2008Q2

REPORT INFORMATION
  Report Type: 
  Country: None (occurrence: None)
  Receive Date: 20080519
  Receipt Date: 20070327
  Transmission Date: 20081010
  Serious: No
  Sender: FDA-Public Use
  Company Number: US-BAYER-US-2007-011055

PATIENT
  Age: 32 Year
  Sex: Male

DRUGS (1)
  1. ULTRAVIST 300 [Suspect]
     Indication: SCAN BRAIN
     Dosage: UNIT DOSE: 100 ML
     Route: 042
     Dates: start: 20070322, end: 20070322

REACTIONS (4)
  - FATIGUE [None]
  - INCREASED UPPER AIRWAY SECRETION [None]
  - PRURITUS GENERALISED [None]
  - URTICARIA [None]
